FAERS Safety Report 16193736 (Version 1)
Quarter: 2019Q2

REPORT INFORMATION
  Report Type: Spontaneous
  Country: FR (occurrence: FR)
  Receive Date: 20190413
  Receipt Date: 20190413
  Transmission Date: 20190711
  Serious: Yes (Hospitalization)
  Sender: FDA-Public Use
  Company Number: FR-TEVA-2019-FR-1036396

PATIENT
  Age: 18 Year
  Sex: Female

DRUGS (3)
  1. AMOXICILLINE [Suspect]
     Active Substance: AMOXICILLIN
     Indication: OTITIS MEDIA ACUTE
     Dosage: INCONNUE
     Route: 048
     Dates: start: 20131212, end: 20131214
  2. NAPROXENE [Suspect]
     Active Substance: NAPROXEN
     Indication: OTITIS MEDIA ACUTE
     Dosage: INCONNUE
     Route: 048
     Dates: end: 20181212
  3. ACIDE CLAVULANIQUE [Suspect]
     Active Substance: CLAVULANIC ACID
     Indication: OTITIS MEDIA ACUTE
     Dosage: INCONNUE
     Route: 048
     Dates: start: 20131212, end: 20131214

REACTIONS (1)
  - Meningitis aseptic [Recovered/Resolved]

NARRATIVE: CASE EVENT DATE: 20131214
